FAERS Safety Report 4668340-9 (Version None)
Quarter: 2005Q2

REPORT INFORMATION
  Report Type: 
  Country: None (occurrence: None)
  Receive Date: 20050519
  Receipt Date: 20050504
  Transmission Date: 20051028
  Serious: Yes (Hospitalization)
  Sender: FDA-Public Use
  Company Number: 2005US000552

PATIENT
  Age: 11 Year
  Sex: Male

DRUGS (2)
  1. PROGRAF [Suspect]
     Indication: PROPHYLAXIS AGAINST TRANSPLANT REJECTION
     Dosage: ORAL
     Route: 048
  2. IMURAN [Concomitant]

REACTIONS (7)
  - BLOOD CREATININE INCREASED [None]
  - DEHYDRATION [None]
  - DIARRHOEA [None]
  - IMMUNOSUPPRESSANT DRUG LEVEL INCREASED [None]
  - MUSCLE SPASMS [None]
  - POOR QUALITY DRUG ADMINISTERED [None]
  - VOMITING [None]
